FAERS Safety Report 10271579 (Version 1)
Quarter: 2014Q3

REPORT INFORMATION
  Report Type: Spontaneous
  Country: BR (occurrence: BR)
  Receive Date: 20140701
  Receipt Date: 20140701
  Transmission Date: 20150326
  Serious: Yes (Other)
  Sender: FDA-Public Use
  Company Number: BR-BAXTER-2014BAX034249

PATIENT
  Age: 23 Year
  Sex: Female

DRUGS (6)
  1. ENDOBULIN [Suspect]
     Active Substance: HUMAN IMMUNOGLOBULIN G
     Indication: ANTIBODY TEST POSITIVE
  2. METHYLPREDNISOLONE [Suspect]
     Active Substance: METHYLPREDNISOLONE
     Indication: RENAL IMPAIRMENT
     Route: 042
  3. PREDNISONE. [Suspect]
     Active Substance: PREDNISONE
     Indication: PRODUCT USED FOR UNKNOWN INDICATION
     Route: 065
  4. SODIUM MYCOPHENOLATE [Suspect]
     Active Substance: MYCOPHENOLATE SODIUM
     Indication: PRODUCT USED FOR UNKNOWN INDICATION
     Route: 065
  5. ENDOBULIN [Suspect]
     Active Substance: HUMAN IMMUNOGLOBULIN G
     Indication: IMMUNOGLOBULIN THERAPY
  6. ANTI-THYMOCYTE GLOBULIN [Suspect]
     Active Substance: THYMOCYTE IMMUNE GLOBULIN NOS
     Indication: PRODUCT USED FOR UNKNOWN INDICATION
     Route: 065

REACTIONS (5)
  - Graft complication [Unknown]
  - Malacoplakia vesicae [Unknown]
  - Complications of transplanted kidney [Unknown]
  - Pyrexia [Unknown]
  - Renal impairment [Not Recovered/Not Resolved]
